FAERS Safety Report 10351609 (Version 1)
Quarter: 2014Q3

REPORT INFORMATION
  Report Type: Spontaneous
  Country: US (occurrence: US)
  Receive Date: 20140730
  Receipt Date: 20140730
  Transmission Date: 20150326
  Serious: Yes (Other)
  Sender: FDA-Public Use
  Company Number: US-BAYER-2014-110122

PATIENT
  Sex: Female
  Weight: 90.7 kg

DRUGS (2)
  1. BAYER GENUINE ASPIRIN [Suspect]
     Active Substance: ASPIRIN
     Indication: MYOCARDIAL INFARCTION
     Dosage: .5-1 DF, PRN
     Route: 048
     Dates: end: 2014
  2. GINKGO BILOBA [Concomitant]
     Active Substance: GINKGO

REACTIONS (4)
  - Drug hypersensitivity [Recovered/Resolved]
  - Dyspnoea [Recovered/Resolved]
  - Choking [Recovered/Resolved]
  - Medication error [None]

NARRATIVE: CASE EVENT DATE: 2014
